FAERS Safety Report 7514668-4 (Version None)
Quarter: 2011Q2

REPORT INFORMATION
  Report Type: 
  Country: None (occurrence: None)
  Receive Date: 20110601
  Receipt Date: 20101227
  Transmission Date: 20111010
  Serious: Yes (Other)
  Sender: FDA-Public Use
  Company Number: US-BAYER-201017024NA

PATIENT
  Age: 20 Year
  Sex: Female
  Weight: 63.636 kg

DRUGS (10)
  1. ANTIBIOTICS [Concomitant]
  2. NAPROXEN (ALEVE) [Concomitant]
  3. NEXIUM [Concomitant]
  4. MUCINEX [Concomitant]
     Indication: UPPER RESPIRATORY TRACT INFECTION
     Dosage: UNK
     Dates: start: 20081201
  5. YAZ [Suspect]
     Indication: ORAL CONTRACEPTION
     Route: 048
     Dates: start: 20080801, end: 20090301
  6. ADVIL LIQUI-GELS [Concomitant]
  7. PRILOSEC [Concomitant]
     Indication: EPIGASTRIC DISCOMFORT
  8. MOBIC [Concomitant]
  9. DELSYM [Concomitant]
     Indication: UPPER RESPIRATORY TRACT INFECTION
     Dosage: UNK
     Dates: start: 20081201
  10. AMOXICILINA [Concomitant]

REACTIONS (3)
  - ABDOMINAL PAIN UPPER [None]
  - CHOLECYSTITIS CHRONIC [None]
  - CHOLELITHIASIS [None]
